FAERS Safety Report 9165425 (Version 2)
Quarter: 2013Q1

REPORT INFORMATION
  Report Type: Spontaneous
  Country: US (occurrence: US)
  Receive Date: 20130315
  Receipt Date: 20130326
  Transmission Date: 20140127
  Serious: Yes (Disabling, Other)
  Sender: FDA-Public Use
  Company Number: PHEH2013US006106

PATIENT
  Age: 50 Year
  Sex: Female

DRUGS (5)
  1. COMBIPATCH [Suspect]
     Indication: HOT FLUSH
     Dosage: 1 DF, BIW
     Route: 062
     Dates: start: 20120516, end: 20130213
  2. BUPROPION HCL ER [Concomitant]
     Dosage: 100 MG, UNK
  3. BUPROPION HCL ER [Concomitant]
     Dosage: 150 MG, UNK
  4. CLONAZEPAM [Concomitant]
     Dosage: UNK UKN, UNK
  5. IBUPROFEN [Concomitant]
     Dosage: UNK UKN, UNK

REACTIONS (3)
  - Retinal vein thrombosis [Not Recovered/Not Resolved]
  - Blindness [Not Recovered/Not Resolved]
  - Application site erythema [Unknown]
